FAERS Safety Report 11721091 (Version 1)
Quarter: 2015Q4

REPORT INFORMATION
  Report Type: Spontaneous
  Country: CN (occurrence: CN)
  Receive Date: 20151110
  Receipt Date: 20151110
  Transmission Date: 20160304
  Serious: Yes (Hospitalization)
  Sender: FDA-Public Use
  Company Number: CN-009507513-1511CHN004084

PATIENT
  Age: 87 Year
  Sex: Female
  Weight: 57 kg

DRUGS (2)
  1. SULPERAZON (AMPICILLIN SODIUM (+) SULBACTAM SODIUM) [Suspect]
     Active Substance: AMPICILLIN SODIUM\SULBACTAM SODIUM
     Indication: INFECTION
     Dosage: 3 G, QD
     Route: 041
     Dates: start: 20150505, end: 20150507
  2. TIENAM [Suspect]
     Active Substance: CILASTATIN SODIUM\IMIPENEM
     Indication: INFECTION
     Dosage: 1 G, QD
     Route: 041
     Dates: start: 20150307, end: 20150511

REACTIONS (1)
  - Haemorrhage [Not Recovered/Not Resolved]

NARRATIVE: CASE EVENT DATE: 20150507
